FAERS Safety Report 4359501-7 (Version None)
Quarter: 2004Q2

REPORT INFORMATION
  Report Type: 
  Country: None (occurrence: None)
  Receive Date: 20040512
  Receipt Date: 20040422
  Transmission Date: 20050107
  Serious: Yes (Hospitalization)
  Sender: FDA-Public Use
  Company Number: USA040361104

PATIENT
  Age: 75 Year
  Sex: Female
  Weight: 79 kg

DRUGS (1)
  1. FORTEO [Suspect]
     Indication: OSTEOPOROSIS
     Dosage: 20 UG/1 DAY
     Dates: start: 20040122

REACTIONS (11)
  - ANXIETY [None]
  - ARTERIAL DISORDER [None]
  - ARTHRITIS [None]
  - ASTHENIA [None]
  - CHEST PAIN [None]
  - JOINT STIFFNESS [None]
  - MOBILITY DECREASED [None]
  - NAIL DISORDER [None]
  - PAIN [None]
  - PHARMACEUTICAL PRODUCT COMPLAINT [None]
  - RENAL DISORDER [None]
